FAERS Safety Report 5077762-6 (Version None)
Quarter: 2006Q3

REPORT INFORMATION
  Report Type: 
  Country: None (occurrence: None)
  Receive Date: 20060807
  Receipt Date: 20060725
  Transmission Date: 20061208
  Serious: Yes (Other)
  Sender: FDA-Public Use
  Company Number: US200607004659

PATIENT
  Age: 92 Year
  Sex: Female

DRUGS (2)
  1. FORTEO [Suspect]
     Dosage: DOSAGE FORM:  INJECTION,
     Dates: start: 20040101, end: 20060101
  2. FORTEO [Concomitant]

REACTIONS (2)
  - BONE DENSITY DECREASED [None]
  - HIP FRACTURE [None]
